FAERS Safety Report 8856301 (Version 1)
Quarter: 2012Q4

REPORT INFORMATION
  Report Type: Spontaneous
  Country: DE (occurrence: None)
  Receive Date: 20121018
  Receipt Date: 20121018
  Transmission Date: 20130627
  Serious: Yes (Life-Threatening)
  Sender: FDA-Public Use
  Company Number: 2012MZ000389

PATIENT
  Age: 14 Year
  Sex: Male

DRUGS (3)
  1. XEOMIN [Suspect]
     Indication: LEG SPASTICITY
     Route: 030
     Dates: start: 20120928, end: 20120928
  2. XEOMIN [Suspect]
     Indication: LEG SPASTICITY
     Route: 030
     Dates: start: 201206, end: 201206
  3. XEOMIN [Suspect]
     Indication: LEG SPASTICITY
     Route: 030

REACTIONS (6)
  - Apnoea [None]
  - Pallor [None]
  - Cardiogenic shock [None]
  - Cardiopulmonary failure [None]
  - Blood glucose decreased [None]
  - Cardio-respiratory arrest [None]
